FAERS Safety Report 6640882-6 (Version None)
Quarter: 2010Q1

REPORT INFORMATION
  Report Type: 
  Country: None (occurrence: None)
  Receive Date: 20100318
  Receipt Date: 20100305
  Transmission Date: 20100710
  Serious: Yes (Hospitalization, Other)
  Sender: FDA-Public Use
  Company Number: AT-ELI_LILLY_AND_COMPANY-AT201003002195

PATIENT
  Age: 30 Year
  Sex: Male

DRUGS (1)
  1. TADALAFIL [Suspect]
     Dosage: UNK, UNKNOWN

REACTIONS (5)
  - DIZZINESS [None]
  - HEADACHE [None]
  - INTENTIONAL OVERDOSE [None]
  - SUICIDE ATTEMPT [None]
  - VERTIGO [None]
